FAERS Safety Report 20814843 (Version 1)
Quarter: 2022Q2

REPORT INFORMATION
  Report Type: Spontaneous
  Country: US (occurrence: None)
  Receive Date: 20220511
  Receipt Date: 20220511
  Transmission Date: 20220721
  Serious: No
  Sender: FDA-Public Use
  Company Number: None

PATIENT
  Age: 66 Year
  Sex: Male

DRUGS (2)
  1. CAPECITABINE [Suspect]
     Active Substance: CAPECITABINE
     Indication: Carcinoid tumour pulmonary
     Dosage: FREQUENCY : TWICE A DAY;?
     Route: 048
     Dates: start: 20200516
  2. TEMOZOLOMIDE [Suspect]
     Active Substance: TEMOZOLOMIDE
     Indication: Carcinoid tumour pulmonary
     Dosage: FREQUENCY : DAILY;?
     Route: 048
     Dates: start: 20180305

REACTIONS (5)
  - Fall [None]
  - Nausea [None]
  - Loss of consciousness [None]
  - Head injury [None]
  - Dizziness [None]

NARRATIVE: CASE EVENT DATE: 20220509
